FAERS Safety Report 19873431 (Version 3)
Quarter: 2021Q4

REPORT INFORMATION
  Report Type: Report from Study
  Country: GB (occurrence: GB)
  Receive Date: 20210923
  Receipt Date: 20211216
  Transmission Date: 20220303
  Serious: Yes (Other)
  Sender: FDA-Public Use
  Company Number: GB-ABBVIE-21K-167-4044801-00

PATIENT
  Age: 74 Year
  Sex: Female

DRUGS (1)
  1. HUMIRA [Suspect]
     Active Substance: ADALIMUMAB
     Indication: Psoriatic arthropathy
     Route: 058
     Dates: end: 202106

REACTIONS (4)
  - Hernia [Unknown]
  - Stoma creation [Unknown]
  - Wound [Unknown]
  - Postoperative wound infection [Unknown]

NARRATIVE: CASE EVENT DATE: 20210101
